FAERS Safety Report 18360740 (Version 1)
Quarter: 2020Q4

REPORT INFORMATION
  Report Type: Spontaneous
  Country: AU (occurrence: AU)
  Receive Date: 20201008
  Receipt Date: 20201008
  Transmission Date: 20210114
  Serious: Yes (Other)
  Sender: FDA-Public Use
  Company Number: AU-AMGEN-AUSSP2020159875

PATIENT
  Sex: Male

DRUGS (1)
  1. PROLIA [Suspect]
     Active Substance: DENOSUMAB
     Indication: PRODUCT USED FOR UNKNOWN INDICATION
     Dosage: UNK
     Route: 065

REACTIONS (6)
  - Back pain [Not Recovered/Not Resolved]
  - Pain in extremity [Unknown]
  - Retinal aneurysm [Unknown]
  - Bone pain [Unknown]
  - Toothache [Unknown]
  - Immune system disorder [Unknown]

NARRATIVE: CASE EVENT DATE: 20130606
